FAERS Safety Report 5662907-7 (Version None)
Quarter: 2008Q1

REPORT INFORMATION
  Report Type: 
  Country: None (occurrence: None)
  Receive Date: 20080313
  Receipt Date: 20080227
  Transmission Date: 20080703
  Serious: Yes (Hospitalization)
  Sender: FDA-Public Use
  Company Number: US-AMGEN-QUU266080

PATIENT
  Sex: Female
  Weight: 91 kg

DRUGS (18)
  1. EPOGEN [Suspect]
     Indication: ANAEMIA
     Route: 058
     Dates: start: 20080121, end: 20080218
  2. PEGASYS [Concomitant]
     Route: 058
     Dates: start: 20071015
  3. PROGRAF [Concomitant]
  4. CELLCEPT [Concomitant]
  5. NEXIUM [Concomitant]
  6. ALLEGRA [Concomitant]
  7. NORVASC [Concomitant]
     Dates: start: 20050923
  8. CALCIUM [Concomitant]
     Route: 048
  9. IRON SULFATETHIAMIN COMPOUND TAB [Concomitant]
     Route: 048
  10. FOLIC ACID [Concomitant]
  11. RIBAVIRIN [Concomitant]
     Dates: start: 20071015
  12. VITAMIN D [Concomitant]
     Route: 048
  13. ASCORBIC ACID [Concomitant]
     Route: 048
  14. VITAMIN E [Concomitant]
     Route: 048
  15. CHRONDROITAN + GLUCOSAMINE [Concomitant]
     Route: 048
  16. COD-LIVER OIL [Concomitant]
  17. FISH OIL [Concomitant]
  18. ACYCLOVIR [Concomitant]

REACTIONS (1)
  - ANAEMIA [None]
